FAERS Safety Report 10762556 (Version 2)
Quarter: 2015Q1

REPORT INFORMATION
  Report Type: Report from Study
  Country: MX (occurrence: MX)
  Receive Date: 20150204
  Receipt Date: 20150224
  Transmission Date: 20150721
  Serious: Yes (Hospitalization, Other)
  Sender: FDA-Public Use
  Company Number: PHHY2015MX013041

PATIENT
  Age: 77 Year
  Sex: Female

DRUGS (4)
  1. SOMAZINA [Concomitant]
     Indication: HEAD DISCOMFORT
     Dosage: 1 DF, BID (ONE IN THE MORNING AND ONE AT NIGHT)
     Route: 065
     Dates: start: 201501
  2. ELIQUIS [Concomitant]
     Active Substance: APIXABAN
     Indication: CARDIOVASCULAR DISORDER
     Dosage: 5 MG, Q72H (AT ANY TIME OF THE DAY)
     Route: 065
     Dates: start: 201501
  3. CO-DIOVAN [Suspect]
     Active Substance: HYDROCHLOROTHIAZIDE\VALSARTAN
     Indication: HYPERTENSION
     Dosage: 1 DF, QD (AT MORNING)
     Route: 065
     Dates: start: 201407, end: 20150101
  4. AESCULUS HIPPOCASTANUM SEED W/MIROTON/RUTOSID [Concomitant]
     Indication: CARDIOVASCULAR DISORDER
     Dosage: UNK OT, IRD
     Route: 065

REACTIONS (11)
  - Hypoaesthesia oral [Not Recovered/Not Resolved]
  - Crying [Not Recovered/Not Resolved]
  - Blood cholesterol increased [Not Recovered/Not Resolved]
  - Fear [Unknown]
  - Depressed mood [Not Recovered/Not Resolved]
  - Hypertension [Recovered/Resolved]
  - Embolism [Unknown]
  - Palpitations [Not Recovered/Not Resolved]
  - Anxiety [Not Recovered/Not Resolved]
  - Blood pressure increased [Unknown]
  - Memory impairment [Not Recovered/Not Resolved]

NARRATIVE: CASE EVENT DATE: 201501
